FAERS Safety Report 6267527-1 (Version None)
Quarter: 2009Q3

REPORT INFORMATION
  Report Type: 
  Country: None (occurrence: None)
  Receive Date: 20090714
  Receipt Date: 20090702
  Transmission Date: 20100115
  Serious: Yes (Hospitalization)
  Sender: FDA-Public Use
  Company Number: PHHY2009GB22037

PATIENT
  Sex: Female

DRUGS (4)
  1. CLOZARIL [Suspect]
     Indication: SCHIZOPHRENIA
     Dosage: 600 MG DAILY
     Route: 048
     Dates: start: 20061101
  2. CLOZARIL [Suspect]
     Dosage: 50 MG, BID
     Dates: start: 20090609, end: 20090617
  3. FERROUS SULFATE TAB [Concomitant]
     Dosage: 400 MG
     Route: 048
     Dates: start: 20090201, end: 20090701
  4. LEVOTHYROXINE SODIUM [Concomitant]
     Dosage: 125 UG, UNK
     Route: 048

REACTIONS (14)
  - ANTIPSYCHOTIC DRUG LEVEL INCREASED [None]
  - ANXIETY [None]
  - ATAXIA [None]
  - BIOPSY KIDNEY [None]
  - COLD SWEAT [None]
  - DRUG DOSE OMISSION [None]
  - FEELING ABNORMAL [None]
  - HYPERHIDROSIS [None]
  - HYPOTENSION [None]
  - LETHARGY [None]
  - RENAL DISORDER [None]
  - RENAL FAILURE ACUTE [None]
  - THERAPY CESSATION [None]
  - TUBULOINTERSTITIAL NEPHRITIS [None]
